FAERS Safety Report 4386521-9 (Version None)
Quarter: 2004Q2

REPORT INFORMATION
  Report Type: 
  Country: None (occurrence: None)
  Receive Date: 20040623
  Receipt Date: 20040611
  Transmission Date: 20050107
  Serious: Yes (Other)
  Sender: FDA-Public Use
  Company Number: 200411797GDS

PATIENT
  Sex: Female

DRUGS (8)
  1. ADALAT [Suspect]
     Indication: ILL-DEFINED DISORDER
     Dosage: 4 MG, TOTAL DAILY, ORAL
     Route: 048
  2. DOXAZOSIN MESYLATE [Suspect]
     Indication: HYPERTENSION
     Dosage: 2 MG, TOTAL DAILY
  3. CARBOCISTEINE [Concomitant]
  4. PRANLUKAST [Concomitant]
  5. GLYBURIDE [Concomitant]
  6. FUROSEMIDE [Concomitant]
  7. PROCATEROL HCL [Concomitant]
  8. BECLOMETHASONE DIPROPIONATE [Concomitant]

REACTIONS (2)
  - HAEMORRHAGE SUBCUTANEOUS [None]
  - THROMBOCYTOPENIA [None]
